FAERS Safety Report 6261100-7 (Version None)
Quarter: 2009Q3

REPORT INFORMATION
  Report Type: 
  Country: None (occurrence: None)
  Receive Date: 20090709
  Receipt Date: 20081103
  Transmission Date: 20100115
  Serious: No
  Sender: FDA-Public Use
  Company Number: US-KINGPHARMUSA00001-K200801260

PATIENT
  Sex: Female

DRUGS (2)
  1. LEVOXYL [Suspect]
     Indication: THYROID DISORDER
     Dosage: 88 MCG, QD, FIVE DAYS PER WEEK
     Route: 048
     Dates: start: 20081020
  2. LEVOXYL [Suspect]
     Dosage: 100 MCG, QD, TWO DAYS PER WEEK
     Dates: start: 20081020

REACTIONS (7)
  - DIARRHOEA [None]
  - FORMICATION [None]
  - HEADACHE [None]
  - INCREASED APPETITE [None]
  - INSOMNIA [None]
  - MUSCULAR WEAKNESS [None]
  - PAIN [None]
